FAERS Safety Report 6692357-6 (Version None)
Quarter: 2010Q2

REPORT INFORMATION
  Report Type: 
  Country: None (occurrence: None)
  Receive Date: 20100419
  Receipt Date: 20100407
  Transmission Date: 20101027
  Serious: No
  Sender: FDA-Public Use
  Company Number: 552904

PATIENT
  Age: 4 Day
  Sex: Male
  Weight: 2.2 kg

DRUGS (1)
  1. HEPARIN SODIUM [Suspect]
     Indication: ANTICOAGULANT THERAPY
     Dosage: 18-20 U/KG/HR, CONTINUOUS INFUSION, INTRAVENOUS
     Route: 042
     Dates: start: 20100401, end: 20100405

REACTIONS (3)
  - DRUG INEFFECTIVE [None]
  - HAEMORRHAGE INTRACRANIAL [None]
  - INTRACARDIAC THROMBUS [None]
